FAERS Safety Report 6242065-0 (Version None)
Quarter: 2009Q2

REPORT INFORMATION
  Report Type: 
  Country: None (occurrence: None)
  Receive Date: 20090622
  Receipt Date: 20090611
  Transmission Date: 20091009
  Serious: Yes (Other)
  Sender: FDA-Public Use
  Company Number: GXKR2009GB06813

PATIENT
  Sex: Male

DRUGS (2)
  1. WARFARIN SODIUM [Suspect]
  2. ENZYMES (NO INGREDIENTS/SUBSTANCES) [Suspect]
     Indication: GLYCOGEN STORAGE DISEASE TYPE II

REACTIONS (2)
  - DRUG INTERACTION [None]
  - LIVER DISORDER [None]
